FAERS Safety Report 9432988 (Version 2)
Quarter: 2013Q3

REPORT INFORMATION
  Report Type: Spontaneous
  Country: GB (occurrence: GB)
  Receive Date: 20130731
  Receipt Date: 20130827
  Transmission Date: 20140515
  Serious: Yes (Other)
  Sender: FDA-Public Use
  Company Number: GB-JNJFOC-20130716625

PATIENT
  Age: 56 Year
  Sex: Male
  Weight: 68.3 kg

DRUGS (7)
  1. PALEXIA [Suspect]
     Indication: BREAKTHROUGH PAIN
     Route: 048
  2. PALEXIA [Suspect]
     Indication: BREAKTHROUGH PAIN
     Route: 048
  3. PALEXIA [Suspect]
     Indication: PAIN
     Route: 048
  4. PALEXIA [Suspect]
     Indication: PAIN
     Route: 048
  5. TRAMADOL HYDROCHLORIDE [Interacting]
     Indication: PRODUCT USED FOR UNKNOWN INDICATION
     Route: 065
  6. BACLOFEN [Concomitant]
     Indication: PRODUCT USED FOR UNKNOWN INDICATION
     Route: 065
  7. CO-CODAMOL [Concomitant]
     Indication: PRODUCT USED FOR UNKNOWN INDICATION
     Route: 065

REACTIONS (8)
  - Pain [Recovering/Resolving]
  - Hypertension [Recovering/Resolving]
  - Anxiety [Recovering/Resolving]
  - Urinary retention [Recovering/Resolving]
  - Headache [Recovering/Resolving]
  - Malaise [Unknown]
  - Drug ineffective [Not Recovered/Not Resolved]
  - Drug interaction [Unknown]
